FAERS Safety Report 5563544-5 (Version None)
Quarter: 2007Q4

REPORT INFORMATION
  Report Type: 
  Country: None (occurrence: None)
  Receive Date: 20071217
  Receipt Date: 20071214
  Transmission Date: 20080405
  Serious: Yes (Hospitalization)
  Sender: FDA-Public Use
  Company Number: DE-WYE-G00776807

PATIENT
  Sex: Male

DRUGS (3)
  1. TREVILOR RETARD [Suspect]
     Dosage: 1 CAPSULE (AMOUNT 150 MG)
     Route: 048
     Dates: start: 20071213, end: 20071213
  2. CLOZAPINE [Suspect]
     Dosage: 1 TABLET (AMOUNT 100 MG)
     Route: 048
     Dates: start: 20071214, end: 20071214
  3. AURORIX [Suspect]
     Dosage: 3 TABLETS (TOTAL AMOUNT 450 MG)
     Route: 048
     Dates: start: 20071214, end: 20071214

REACTIONS (2)
  - CHEST PAIN [None]
  - DRUG ABUSE [None]
